FAERS Safety Report 4297159-6 (Version None)
Quarter: 2004Q1

REPORT INFORMATION
  Report Type: 
  Country: None (occurrence: None)
  Receive Date: 20040217
  Receipt Date: 20040217
  Transmission Date: 20041129
  Serious: No
  Sender: FDA-Public Use
  Company Number: None

PATIENT
  Sex: Male
  Weight: 86 kg

DRUGS (4)
  1. ABACAVIR [Suspect]
     Indication: HIV INFECTION
     Dosage: 300 MG BID PO
     Route: 048
     Dates: start: 20031028
  2. ATAZANAVIR [Suspect]
     Indication: HIV INFECTION
     Dosage: 400 MG Q AM PO
     Route: 048
     Dates: start: 20031028
  3. LISINOPRIL [Concomitant]
  4. LAMIVUDINE [Concomitant]

REACTIONS (1)
  - RASH [None]
